FAERS Safety Report 7111906 (Version 2)
Quarter: 2013Q1

REPORT INFORMATION
  Report Type: Spontaneous
  Country: NO (occurrence: None)
  Receive Date: 20090902
  Receipt Date: 20130108
  Transmission Date: 20140127
  Serious: Yes (Other)
  Sender: FDA-Public Use
  Company Number: 2009AP000568

PATIENT
  Age: 17 Year
  Sex: Female

DRUGS (5)
  1. CARBAMAZEPINE [Suspect]
     Indication: EPILEPSY
  2. PHENYTOIN [Suspect]
     Indication: EPILEPSY
  3. LAMOTRIGINE (LAMOTRIGINE) [Suspect]
     Indication: EPILEPSY
  4. OXCARBAZEPINE [Suspect]
     Indication: EPILEPSY
  5. PHENOBARBITAL [Concomitant]

REACTIONS (3)
  - Drug hypersensitivity [None]
  - Rash [None]
  - Idiosyncratic drug reaction [None]
